FAERS Safety Report 9334841 (Version 5)
Quarter: 2015Q4

REPORT INFORMATION
  Report Type: Spontaneous
  Country: US (occurrence: US)
  Receive Date: 20130606
  Receipt Date: 20151204
  Transmission Date: 20160305
  Serious: Yes (Hospitalization, Other)
  Sender: FDA-Public Use
  Company Number: US-ELI_LILLY_AND_COMPANY-US201305009061

PATIENT
  Age: 12 Year
  Sex: Male
  Weight: 69.84 kg

DRUGS (15)
  1. VYVANSE [Suspect]
     Active Substance: LISDEXAMFETAMINE DIMESYLATE
     Indication: ATTENTION DEFICIT/HYPERACTIVITY DISORDER
     Dosage: 20 MG, QD
     Route: 048
     Dates: start: 20130321, end: 20130924
  2. DESYREL [Suspect]
     Active Substance: TRAZODONE HYDROCHLORIDE
     Indication: AFFECTIVE DISORDER
     Dosage: 25 MG, QD
     Route: 048
     Dates: start: 20130108, end: 20130616
  3. MENINGOCOCCAL POLYSACCHARIDE VACCINE A NOS [Suspect]
     Active Substance: MENINGOCOCCAL POLYSACCHARIDE VACCINE A\NEISSERIA MENINGITIDIS GROUP A CAPSULAR POLYSACCHARIDE ANTIGEN
     Indication: IMMUNISATION
     Dosage: 1 DF, SINGLE
     Route: 030
     Dates: start: 20130409, end: 20130409
  4. PROZAC [Suspect]
     Active Substance: FLUOXETINE HYDROCHLORIDE
     Indication: AFFECTIVE DISORDER
     Dosage: 10 MG, QD
     Route: 048
     Dates: start: 20121108
  5. DEPAKOTE [Suspect]
     Active Substance: DIVALPROEX SODIUM
     Indication: AFFECTIVE DISORDER
     Dosage: 300 MG, BID
     Route: 048
     Dates: start: 20120301
  6. DEPAKOTE [Suspect]
     Active Substance: DIVALPROEX SODIUM
     Dosage: 500 MG, BID
     Route: 048
  7. VYVANSE [Suspect]
     Active Substance: LISDEXAMFETAMINE DIMESYLATE
     Indication: AFFECTIVE DISORDER
     Dosage: 40 MG, EACH MORNING
     Route: 048
     Dates: start: 20130321, end: 20130924
  8. THORAZINE [Suspect]
     Active Substance: CHLORPROMAZINE
     Indication: AGGRESSION
     Dosage: 25 MG, EVERY 8 HRS
     Route: 048
     Dates: start: 20130921
  9. MENINGOCOCCAL POLYSACCHARIDE VACCINE A NOS [Suspect]
     Active Substance: MENINGOCOCCAL POLYSACCHARIDE VACCINE A\NEISSERIA MENINGITIDIS GROUP A CAPSULAR POLYSACCHARIDE ANTIGEN
     Dosage: 1 DF, SINGLE
     Route: 030
     Dates: start: 20121207, end: 20121207
  10. CATAPRES                           /00171101/ [Suspect]
     Active Substance: CLONIDINE
     Indication: AFFECTIVE DISORDER
     Dosage: 0.2 MG, EACH EVENING
     Route: 048
     Dates: start: 20120301
  11. DEPAKOTE [Suspect]
     Active Substance: DIVALPROEX SODIUM
     Dosage: 250 MG, TID
     Route: 048
  12. CATAPRES                           /00171101/ [Suspect]
     Active Substance: CLONIDINE
     Dosage: 0.1 MG, BID
     Route: 048
     Dates: start: 20130921
  13. DESYREL [Suspect]
     Active Substance: TRAZODONE HYDROCHLORIDE
     Indication: SLEEP DISORDER
     Dosage: 12.5 MG, EACH EVENING
     Route: 048
     Dates: start: 20130617
  14. THORAZINE [Suspect]
     Active Substance: CHLORPROMAZINE
     Indication: AGITATION
     Dosage: 20 MG, TID
     Route: 048
     Dates: start: 20130326
  15. MENINGOCOCCAL POLYSACCHARIDE VACCINE A NOS [Suspect]
     Active Substance: MENINGOCOCCAL POLYSACCHARIDE VACCINE A\NEISSERIA MENINGITIDIS GROUP A CAPSULAR POLYSACCHARIDE ANTIGEN
     Dosage: 1 DF, SINGLE
     Route: 030
     Dates: start: 20121009, end: 20121009

REACTIONS (9)
  - Affective disorder [Unknown]
  - Affective disorder [Recovered/Resolved]
  - Suicidal ideation [Recovered/Resolved]
  - Aggression [Recovered/Resolved]
  - Affective disorder [Recovered/Resolved]
  - Aggression [Unknown]
  - Off label use [Not Recovered/Not Resolved]
  - Drug dose omission [Recovered/Resolved]
  - Agitation [Unknown]

NARRATIVE: CASE EVENT DATE: 201301
